FAERS Safety Report 12797547 (Version 1)
Quarter: 2016Q3

REPORT INFORMATION
  Report Type: Report from Study
  Country: US (occurrence: US)
  Receive Date: 20160930
  Receipt Date: 20160930
  Transmission Date: 20161109
  Serious: Yes (Life-Threatening, Hospitalization, Other)
  Sender: FDA-Public Use
  Company Number: US-ROCHE-1042706

PATIENT
  Age: 60 Year
  Sex: Female
  Weight: 118.3 kg

DRUGS (8)
  1. BEVACIZUMAB [Suspect]
     Active Substance: BEVACIZUMAB
     Indication: ENDOMETRIAL CANCER
     Dosage: OVER 30-90 MINUTES ON DAY 1. LAST DOSE PRIOR TO SAE ON 27 DEC 2012, 1774 MG?RECEIVED ON 12/SEP/2011,
     Route: 042
  2. IXABEPILONE [Suspect]
     Active Substance: IXABEPILONE
     Indication: ENDOMETRIAL CANCER
     Dosage: OVER 1 HR ON DAY 1 X 6 CYCLES.  LAST DOSE PRIOR TO SAE 27/DEC/2011, 60 MG
     Route: 042
     Dates: start: 20110912
  3. CARBOPLATIN. [Suspect]
     Active Substance: CARBOPLATIN
     Indication: ENDOMETRIAL CANCER
     Route: 042
     Dates: start: 20110912
  4. BEVACIZUMAB [Suspect]
     Active Substance: BEVACIZUMAB
     Dosage: RECEIVED ON 18/JAN/2013, 03/NOV/2013, 01/APR/2013, 22/APR/2013, 03/JUN/2013, 24/JUN/2013, 15/JUL/201
     Route: 042
  5. IXABEPILONE [Suspect]
     Active Substance: IXABEPILONE
     Dosage: RECEIVED ON 14/NOV/2011, 05/DEC/2011 AND 27/DEC/2011
     Route: 042
  6. BEVACIZUMAB [Suspect]
     Active Substance: BEVACIZUMAB
     Dosage: RECEIVED ON 11/JUN/2012, 23/JUL/2012, 13/AUG/2012, 04/SEP/2012, 24/SEP/2012, 15/OCT/2012, 05/NOV/201
     Route: 042
  7. BEVACIZUMAB [Suspect]
     Active Substance: BEVACIZUMAB
     Dosage: RECEIVED ON 07/OCT/2013, 28/OCT/2013, 18/NOV/2013, 09/DEC/2013, 30/DEC/2013, 14/NOV/2011, 10/FEB/201
     Route: 042
  8. BEVACIZUMAB [Suspect]
     Active Substance: BEVACIZUMAB
     Dosage: 06/FEB/2012
     Route: 042

REACTIONS (7)
  - Platelet count decreased [Recovered/Resolved]
  - Anaemia [Unknown]
  - Neutrophil count decreased [Unknown]
  - Peripheral sensory neuropathy [Unknown]
  - Weight decreased [Unknown]
  - White blood cell count decreased [Unknown]
  - Platelet count decreased [Unknown]

NARRATIVE: CASE EVENT DATE: 20120109
